FAERS Safety Report 11095598 (Version 2)
Quarter: 2015Q2

REPORT INFORMATION
  Report Type: Spontaneous
  Country: VE (occurrence: VE)
  Receive Date: 20150506
  Receipt Date: 20150522
  Transmission Date: 20150821
  Serious: Yes (Other)
  Sender: FDA-Public Use
  Company Number: PHHY2015VE053243

PATIENT
  Age: 68 Year
  Sex: Female

DRUGS (5)
  1. LEVOTIROXINA [Concomitant]
     Active Substance: LEVOTHYROXINE SODIUM
     Indication: HYPOTHYROIDISM
     Dosage: UNK
     Route: 048
  2. AFINITOR [Suspect]
     Active Substance: EVEROLIMUS
     Dosage: 10 MG, QOD
     Route: 048
  3. AFINITOR [Suspect]
     Active Substance: EVEROLIMUS
     Indication: BREAST CANCER METASTATIC
     Dosage: 10 MG, QD
     Route: 048
  4. LEVOTIROXINA [Concomitant]
     Active Substance: LEVOTHYROXINE SODIUM
     Indication: CONCOMITANT DISEASE AGGRAVATED
     Dosage: UNK
     Route: 048
  5. EXEMESTANE. [Concomitant]
     Active Substance: EXEMESTANE
     Indication: BREAST CANCER METASTATIC
     Route: 048

REACTIONS (8)
  - Mucosal inflammation [Recovered/Resolved]
  - Malignant neoplasm progression [Recovering/Resolving]
  - Oedema [Recovered/Resolved]
  - Transaminases increased [Recovered/Resolved]
  - Hypothyroidism [Recovered/Resolved]
  - Blood glucose increased [Recovered/Resolved]
  - Concomitant disease aggravated [Recovered/Resolved]
  - Asthenia [Recovered/Resolved]
